FAERS Safety Report 8314019 (Version 8)
Quarter: 2014Q3

REPORT INFORMATION
  Report Type: Spontaneous
  Country: US (occurrence: US)
  Receive Date: 20111202
  Receipt Date: 20140731
  Transmission Date: 20150326
  Serious: Yes (Hospitalization, Other)
  Sender: FDA-Public Use
  Company Number: US-009507513-2011SP030606

PATIENT
  Sex: Female
  Weight: 81.65 kg

DRUGS (4)
  1. ALBUTEROL. [Concomitant]
     Active Substance: ALBUTEROL
     Indication: ASTHMA EXERCISE INDUCED
     Dates: start: 1997
  2. NUVARING [Suspect]
     Active Substance: ETHINYL ESTRADIOL\ETONOGESTREL
     Dosage: UNK
     Route: 067
     Dates: start: 200901, end: 200907
  3. NUVARING [Suspect]
     Active Substance: ETHINYL ESTRADIOL\ETONOGESTREL
     Indication: CONTRACEPTION
     Dosage: UNK
     Route: 067
     Dates: start: 200601, end: 200808
  4. HEMP [Concomitant]
     Active Substance: HEMP
     Dosage: UNK UNK, TIW

REACTIONS (11)
  - Cavernous sinus thrombosis [Recovered/Resolved]
  - Deep vein thrombosis [Unknown]
  - Chlamydial infection [Unknown]
  - Emotional disorder [Unknown]
  - Migraine [Unknown]
  - Inappropriate schedule of drug administration [Unknown]
  - Anaemia [Unknown]
  - Vaginal discharge [Unknown]
  - Dysmenorrhoea [Unknown]
  - Bacterial vaginosis [Unknown]
  - Dyspareunia [Unknown]

NARRATIVE: CASE EVENT DATE: 20070927
